FAERS Safety Report 18119285 (Version 2)
Quarter: 2020Q3

REPORT INFORMATION
  Report Type: Report from Study
  Country: GT (occurrence: GT)
  Receive Date: 20200806
  Receipt Date: 20200915
  Transmission Date: 20201103
  Serious: Yes (Other)
  Sender: FDA-Public Use
  Company Number: NVSC2020GT217027

PATIENT
  Age: 63 Year
  Sex: Male

DRUGS (3)
  1. VYMADA [Suspect]
     Active Substance: SACUBITRIL\VALSARTAN
     Indication: CARDIAC FAILURE
     Dosage: 100 MG, QD
     Route: 065
     Dates: start: 202001
  2. ASPIRIN. [Concomitant]
     Active Substance: ASPIRIN
     Indication: FATIGUE
     Dosage: 100 MG
     Route: 065
  3. BISOPROLOL [Concomitant]
     Active Substance: BISOPROLOL
     Indication: CARDIAC FAILURE
     Dosage: 5 MG, QD
     Route: 048
     Dates: start: 202001

REACTIONS (9)
  - Swelling [Unknown]
  - Headache [Unknown]
  - Insomnia [Unknown]
  - Cardiac failure [Unknown]
  - Platelet count decreased [Unknown]
  - Cardiomegaly [Unknown]
  - Anger [Unknown]
  - Amnesia [Unknown]
  - Fatigue [Unknown]

NARRATIVE: CASE EVENT DATE: 202006
